FAERS Safety Report 9695500 (Version 1)
Quarter: 2013Q4

REPORT INFORMATION
  Report Type: Spontaneous
  Country: US (occurrence: None)
  Receive Date: 20131118
  Receipt Date: 20131118
  Transmission Date: 20140711
  Serious: Yes (Other)
  Sender: FDA-Public Use
  Company Number: None

PATIENT
  Age: 58 Year
  Sex: Female
  Weight: 71.67 kg

DRUGS (1)
  1. CARAC [Suspect]
     Indication: ACTINIC KERATOSIS
     Dosage: APPLY TO AFFECTED AREA ?ONCE DAILY?APPLIED TO A SURGACE USUALLY THE SKIN
     Dates: start: 20131028, end: 20131031

REACTIONS (3)
  - Diarrhoea haemorrhagic [None]
  - Abdominal pain upper [None]
  - Back pain [None]
